FAERS Safety Report 24226465 (Version 2)
Quarter: 2024Q3

REPORT INFORMATION
  Report Type: Report from Study
  Country: CN (occurrence: CN)
  Receive Date: 20240820
  Receipt Date: 20240903
  Transmission Date: 20241016
  Serious: Yes (Other)
  Sender: JOHNSON AND JOHNSON
  Company Number: CN-JNJFOC-20240776494

PATIENT

DRUGS (1)
  1. REMICADE [Suspect]
     Active Substance: INFLIXIMAB
     Indication: Crohn^s disease
     Route: 041

REACTIONS (7)
  - Anaphylactoid reaction [Unknown]
  - Infusion related reaction [Unknown]
  - Infection [Unknown]
  - Neoplasm [Unknown]
  - Drug specific antibody [Unknown]
  - Dermatitis psoriasiform [Unknown]
  - Therapeutic response decreased [Unknown]
